FAERS Safety Report 9267821 (Version 1)
Quarter: 2013Q2

REPORT INFORMATION
  Report Type: Spontaneous
  Country: US (occurrence: US)
  Receive Date: 20130502
  Receipt Date: 20130502
  Transmission Date: 20140414
  Serious: No
  Sender: FDA-Public Use
  Company Number: US-ALEXION-A201201063

PATIENT
  Age: 51 Year
  Sex: Male
  Weight: 93 kg

DRUGS (8)
  1. SOLIRIS 300MG [Suspect]
     Indication: PAROXYSMAL NOCTURNAL HAEMOGLOBINURIA
     Dosage: 900 MG, Q2W
     Route: 042
  2. SOLIRIS 300MG [Suspect]
     Dosage: UNK
     Route: 042
     Dates: start: 200509
  3. CYANOCOBALAMIN [Concomitant]
     Dosage: UNK QD
  4. DOXYCYCLINE CALCIUM [Concomitant]
     Dosage: 100 MG, BID
  5. FOLIC ACID [Concomitant]
     Dosage: UNK QD
  6. MULTIVITAMIN [Concomitant]
     Dosage: UNK QD
  7. PAROXETIN [Concomitant]
     Dosage: 20 MG, QD
  8. COUMADIN [Concomitant]
     Dosage: 7.5 MG AS DIRECTED

REACTIONS (8)
  - Iron deficiency [Unknown]
  - Neutrophil count decreased [Unknown]
  - Stress [Not Recovered/Not Resolved]
  - Infection [Unknown]
  - Haemolysis [Unknown]
  - Haemoglobin decreased [Unknown]
  - Haematocrit decreased [Unknown]
  - Fatigue [Not Recovered/Not Resolved]
